FAERS Safety Report 4696272-9 (Version None)
Quarter: 2005Q2

REPORT INFORMATION
  Report Type: 
  Country: None (occurrence: None)
  Receive Date: 20050620
  Receipt Date: 20050606
  Transmission Date: 20051028
  Serious: Yes (Hospitalization, Other)
  Sender: FDA-Public Use
  Company Number: 2005076901

PATIENT
  Age: 61 Year
  Sex: Female
  Weight: 77.1115 kg

DRUGS (8)
  1. XANAX [Suspect]
     Indication: AGORAPHOBIA
     Dosage: 3 MG, ORAL
     Route: 048
  2. XANAX [Suspect]
     Indication: PANIC ATTACK
     Dosage: 3 MG, ORAL
     Route: 048
  3. ZOLOFT [Suspect]
     Indication: ANXIETY
     Dosage: ORAL
     Route: 048
  4. ZOLOFT [Suspect]
     Indication: PANIC REACTION
     Dosage: ORAL
     Route: 048
  5. TYLENOL [Concomitant]
  6. CHROMAGEN FA [Concomitant]
  7. PREMARIN [Concomitant]
  8. PROVERA [Concomitant]

REACTIONS (10)
  - ABNORMAL BEHAVIOUR [None]
  - ACTIVITIES OF DAILY LIVING IMPAIRED [None]
  - AGORAPHOBIA [None]
  - ANAEMIA [None]
  - ANXIETY [None]
  - DIARRHOEA [None]
  - GASTROINTESTINAL DISORDER [None]
  - IRRITABLE BOWEL SYNDROME [None]
  - PANIC ATTACK [None]
  - UTERINE PROLAPSE [None]
